FAERS Safety Report 14407696 (Version 1)
Quarter: 2018Q1

REPORT INFORMATION
  Report Type: Spontaneous
  Country: US (occurrence: US)
  Receive Date: 20180117
  Receipt Date: 20180117
  Transmission Date: 20180509
  Serious: Yes (Other)
  Sender: FDA-Public Use
  Company Number: None

PATIENT
  Age: 47 Year
  Sex: Female
  Weight: 87.12 kg

DRUGS (1)
  1. VARUBI [Suspect]
     Active Substance: ROLAPITANT
     Indication: NAUSEA
     Dates: start: 20180104, end: 20180104

REACTIONS (5)
  - Infusion related reaction [None]
  - Flushing [None]
  - Back pain [None]
  - Paraesthesia [None]
  - Chest pain [None]

NARRATIVE: CASE EVENT DATE: 20180104
